FAERS Safety Report 5542714-6 (Version None)
Quarter: 2007Q4

REPORT INFORMATION
  Report Type: 
  Country: None (occurrence: None)
  Receive Date: 20071210
  Receipt Date: 20071203
  Transmission Date: 20080405
  Serious: Yes (Death, Other)
  Sender: FDA-Public Use
  Company Number: US-PFIZER INC-2006029334

PATIENT
  Sex: Male

DRUGS (10)
  1. XALATAN [Suspect]
     Indication: GLAUCOMA
     Route: 047
  2. XAL-EASE [Suspect]
  3. LIPITOR [Suspect]
     Indication: ILL-DEFINED DISORDER
  4. NORVASC [Suspect]
     Indication: ILL-DEFINED DISORDER
  5. SYNTHROID [Suspect]
     Indication: ILL-DEFINED DISORDER
  6. ACIPHEX [Suspect]
     Indication: ILL-DEFINED DISORDER
  7. COSOPT [Concomitant]
  8. TRILEPTAL [Concomitant]
  9. PLAVIX [Concomitant]
  10. ACETYLSALICYLIC ACID SRT [Concomitant]

REACTIONS (7)
  - BLOOD CHOLESTEROL INCREASED [None]
  - DEATH [None]
  - DRUG ADMINISTRATION ERROR [None]
  - GASTROOESOPHAGEAL REFLUX DISEASE [None]
  - HYPERTENSION [None]
  - INTRAOCULAR PRESSURE INCREASED [None]
  - THYROID DISORDER [None]
